FAERS Safety Report 5426907-4 (Version None)
Quarter: 2007Q3

REPORT INFORMATION
  Report Type: 
  Country: None (occurrence: None)
  Receive Date: 20070827
  Receipt Date: 20070815
  Transmission Date: 20080115
  Serious: Yes (Other)
  Sender: FDA-Public Use
  Company Number: US-PFIZER INC-2007068756

PATIENT
  Sex: Male
  Weight: 109.3 kg

DRUGS (10)
  1. LYRICA [Suspect]
     Indication: NEURALGIA
  2. GLIPIZIDE [Suspect]
     Indication: DIABETES MELLITUS
  3. HUMULIN N [Concomitant]
  4. LISINOPRIL [Concomitant]
  5. ANTIHYPERTENSIVES [Concomitant]
  6. CLONIDINE [Concomitant]
  7. LOPERAMIDE HCL [Concomitant]
  8. TORSEMIDE [Concomitant]
  9. ZOCOR [Concomitant]
  10. VITAMIN CAP [Concomitant]

REACTIONS (9)
  - BLOOD CREATININE INCREASED [None]
  - BLOOD GLUCOSE FLUCTUATION [None]
  - BLOOD GLUCOSE INCREASED [None]
  - BLOOD POTASSIUM INCREASED [None]
  - BLOOD UREA INCREASED [None]
  - FOOT OPERATION [None]
  - OEDEMA [None]
  - OEDEMA PERIPHERAL [None]
  - SKIN DISORDER [None]
